FAERS Safety Report 23492370 (Version 2)
Quarter: 2024Q1

REPORT INFORMATION
  Report Type: Spontaneous
  Country: US (occurrence: US)
  Receive Date: 20240207
  Receipt Date: 20240313
  Transmission Date: 20240410
  Serious: Yes (Other)
  Sender: FDA-Public Use
  Company Number: US-BRISTOL-MYERS SQUIBB COMPANY-2024-015872

PATIENT
  Age: 75 Year
  Sex: Male

DRUGS (2)
  1. LENALIDOMIDE [Suspect]
     Active Substance: LENALIDOMIDE
     Indication: Plasma cell myeloma
     Route: 048
     Dates: end: 202312
  2. LENALIDOMIDE [Suspect]
     Active Substance: LENALIDOMIDE
     Dosage: TAKE 1 CAPSULE (20MG) BY MOUTH EVERY DAY FOR 14 DAYS, THEN OFF 1 WEEK. REPEAT
     Route: 048
     Dates: start: 20240129

REACTIONS (4)
  - Product supply issue [Recovered/Resolved]
  - Laboratory test abnormal [Recovered/Resolved]
  - Therapy interrupted [Unknown]
  - Off label use [Unknown]
